FAERS Safety Report 19432788 (Version 3)
Quarter: 2021Q3

REPORT INFORMATION
  Report Type: Spontaneous
  Country: US (occurrence: US)
  Receive Date: 20210618
  Receipt Date: 20210927
  Transmission Date: 20211014
  Serious: Yes (Hospitalization, Other)
  Sender: FDA-Public Use
  Company Number: US-JNJFOC-20210625495

PATIENT
  Sex: Male

DRUGS (2)
  1. REMICADE [Suspect]
     Active Substance: INFLIXIMAB
     Indication: PRODUCT USED FOR UNKNOWN INDICATION
     Route: 042
  2. DEXAMETHASONE. [Interacting]
     Active Substance: DEXAMETHASONE
     Route: 008

REACTIONS (7)
  - Renal failure [Unknown]
  - Hospitalisation [Unknown]
  - Drug ineffective [Unknown]
  - Immunosuppression [Unknown]
  - Accident [Unknown]
  - Drug interaction [Unknown]
  - Infection [Unknown]
